FAERS Safety Report 9734064 (Version 2)
Quarter: 2014Q2

REPORT INFORMATION
  Report Type: Spontaneous
  Country: US (occurrence: US)
  Receive Date: 20131205
  Receipt Date: 20140512
  Transmission Date: 20141212
  Serious: Yes (Hospitalization, Disabling, Other)
  Sender: FDA-Public Use
  Company Number: US-009507513-1312USA001839

PATIENT
  Sex: Female

DRUGS (4)
  1. FOSAMAX [Suspect]
     Indication: OSTEOPOROSIS PROPHYLAXIS
     Dosage: UNK
     Route: 048
     Dates: start: 1995, end: 200802
  2. FOSAMAX [Suspect]
     Indication: OSTEOPOROSIS
  3. ALENDRONATE SODIUM [Suspect]
     Indication: OSTEOPOROSIS PROPHYLAXIS
     Dosage: 70 MG, QW
     Route: 048
     Dates: start: 20080209, end: 2009
  4. ALENDRONATE SODIUM [Suspect]
     Indication: OSTEOPOROSIS

REACTIONS (19)
  - Fracture nonunion [Recovering/Resolving]
  - Intramedullary rod insertion [Unknown]
  - Hip fracture [Not Recovered/Not Resolved]
  - Low turnover osteopathy [Not Recovered/Not Resolved]
  - Osteoporosis [Not Recovered/Not Resolved]
  - Parathyroidectomy [Unknown]
  - Femur fracture [Not Recovered/Not Resolved]
  - Tendonitis [Unknown]
  - Piriformis syndrome [Unknown]
  - Hyperparathyroidism [Unknown]
  - Body height decreased [Unknown]
  - Osteopenia [Unknown]
  - Sciatica [Unknown]
  - Intervertebral disc degeneration [Unknown]
  - Hysterectomy [Unknown]
  - Parathyroid tumour [Unknown]
  - Hypercholesterolaemia [Unknown]
  - Oophorectomy bilateral [Unknown]
  - Thyroid neoplasm [Unknown]
